FAERS Safety Report 19361140 (Version 2)
Quarter: 2021Q2

REPORT INFORMATION
  Report Type: Spontaneous
  Country: US (occurrence: US)
  Receive Date: 20210603
  Receipt Date: 20210607
  Transmission Date: 20210717
  Serious: Yes (Other)
  Sender: FDA-Public Use
  Company Number: US-JNJFOC-20210551239

PATIENT
  Age: 39 Year
  Sex: Female
  Weight: 100.79 kg

DRUGS (4)
  1. REMICADE [Suspect]
     Active Substance: INFLIXIMAB
     Indication: PRODUCT USED FOR UNKNOWN INDICATION
     Route: 042
  2. HUMIRA [Suspect]
     Active Substance: ADALIMUMAB
     Route: 058
     Dates: start: 202105
  3. HUMIRA [Suspect]
     Active Substance: ADALIMUMAB
     Indication: COLITIS ULCERATIVE
     Route: 058
     Dates: start: 20210427, end: 20210427
  4. HUMIRA [Suspect]
     Active Substance: ADALIMUMAB
     Route: 058
     Dates: start: 20210511, end: 20210511

REACTIONS (6)
  - Arthralgia [Unknown]
  - Haematochezia [Unknown]
  - Maternal exposure during pregnancy [Unknown]
  - Frequent bowel movements [Unknown]
  - Insomnia [Unknown]
  - Mucous stools [Unknown]

NARRATIVE: CASE EVENT DATE: 202105
